FAERS Safety Report 6383421-X (Version None)
Quarter: 2009Q3

REPORT INFORMATION
  Report Type: 
  Country: None (occurrence: None)
  Receive Date: 20090929
  Receipt Date: 20090929
  Transmission Date: 20100115
  Serious: Yes (Other)
  Sender: FDA-Public Use
  Company Number: None

PATIENT
  Sex: Female

DRUGS (2)
  1. SERTRALINE HCL [Suspect]
     Indication: MAJOR DEPRESSION
     Dosage: 100 MG 2 QD P.O.
     Route: 048
  2. ZYPREXA [Concomitant]

REACTIONS (3)
  - CONTUSION [None]
  - PETECHIAE [None]
  - PRODUCT SUBSTITUTION ISSUE [None]
